FAERS Safety Report 6785174-X (Version None)
Quarter: 2010Q2

REPORT INFORMATION
  Report Type: 
  Country: None (occurrence: None)
  Receive Date: 20100621
  Receipt Date: 20100621
  Transmission Date: 20101027
  Serious: Yes (Other)
  Sender: FDA-Public Use
  Company Number: None

PATIENT
  Age: 56 Year
  Sex: Female
  Weight: 54.4316 kg

DRUGS (1)
  1. COPPERTONE SPORT SUNSCREEN 30 SCHERING-PLOUGHHEALTHCARE PRODUCTS [Suspect]
     Dosage: ONE SPRAY ONE TIME TOP
     Route: 061
     Dates: start: 20100618, end: 20100618

REACTIONS (3)
  - PRODUCT QUALITY ISSUE [None]
  - PRURITUS [None]
  - RASH [None]
